FAERS Safety Report 9173549 (Version 2)
Quarter: 2013Q2

REPORT INFORMATION
  Report Type: Spontaneous
  Country: FR (occurrence: None)
  Receive Date: 20130207
  Receipt Date: 20130614
  Transmission Date: 20140414
  Serious: Yes (Hospitalization)
  Sender: FDA-Public Use
  Company Number: 2013034651

PATIENT
  Age: 58 Year
  Sex: Female

DRUGS (16)
  1. PRIVIGEN [Suspect]
     Indication: JUVENILE IDIOPATHIC ARTHRITIS
     Dosage: 50 G QD INTRAVENOUS (NOT OTHERWISE SPECIFIED)
     Route: 042
     Dates: start: 20121226, end: 20121228
  2. STAGID (METFORMIN EMBONATE) [Concomitant]
  3. KARDEGIC /1740801/KARDEGIC /01740801/) [Concomitant]
  4. LEVOTHYROX (LEVOTHYROINE SODIUM) [Concomitant]
  5. EFFEXOR /01233801/ (VENLAFAXINE) [Concomitant]
  6. ALPRAZOLAM (ALPRAZOLAM) [Concomitant]
  7. TOPALGIC LP (TRAMADOL HDYROCHLORIDE) [Concomitant]
  8. DOLIPRANE (PARACETAMOL) [Concomitant]
  9. ATARAX /00058401/ (HYDROXYZINE) [Concomitant]
  10. LYRICA (PREGABALIN) [Concomitant]
  11. CORTANCYL (PREDNISONE) [Concomitant]
  12. PARIET (RABEPRAZOLE SODIUM) [Concomitant]
  13. TOPALGIC [Concomitant]
  14. COLCHICINE (COLCHICINE) [Concomitant]
  15. LANTUS (INSULIN GLARGINE) [Concomitant]
  16. NOVORAPID (INSULIN ASPART) [Concomitant]

REACTIONS (7)
  - Anaphylactic reaction [None]
  - Bronchospasm [None]
  - Angioedema [None]
  - Pyrexia [None]
  - Headache [None]
  - Myalgia [None]
  - Off label use [None]
